FAERS Safety Report 5137081-6 (Version None)
Quarter: 2006Q4

REPORT INFORMATION
  Report Type: 
  Country: None (occurrence: None)
  Receive Date: 20061030
  Receipt Date: 20060515
  Transmission Date: 20070319
  Serious: Yes (Congenital Anomaly)
  Sender: FDA-Public Use
  Company Number: PHBS2006CA07360

PATIENT
  Age: 1 Day
  Sex: Male
  Weight: 3.235 kg

DRUGS (1)
  1. FEMARA [Suspect]
     Dosage: MATERNAL DOSE: 2.5 MG PO FOR 5 DAYS
     Route: 064

REACTIONS (2)
  - DRUG EXPOSURE BEFORE PREGNANCY [None]
  - HYDROCELE [None]
